FAERS Safety Report 11067724 (Version 4)
Quarter: 2015Q3

REPORT INFORMATION
  Report Type: Spontaneous
  Country: US (occurrence: US)
  Receive Date: 20150427
  Receipt Date: 20150928
  Transmission Date: 20151125
  Serious: Yes (Hospitalization, Other)
  Sender: FDA-Public Use
  Company Number: US-BAYER-2015-166121

PATIENT
  Age: 22 Year
  Sex: Female
  Weight: 68 kg

DRUGS (2)
  1. YAZ [Suspect]
     Active Substance: DROSPIRENONE\ETHINYL ESTRADIOL
     Indication: CONTRACEPTION
     Dosage: UNK
     Dates: start: 2011, end: 20120305
  2. CEFAZOLIN [Concomitant]
     Active Substance: CEFAZOLIN

REACTIONS (6)
  - Deep vein thrombosis [None]
  - Pulmonary embolism [None]
  - Pain [None]
  - Pelvic venous thrombosis [None]
  - Pulmonary infarction [None]
  - Injury [None]

NARRATIVE: CASE EVENT DATE: 20120306
